FAERS Safety Report 23051355 (Version 1)
Quarter: 2023Q4

REPORT INFORMATION
  Report Type: Report from Study
  Country: US (occurrence: US)
  Receive Date: 20231010
  Receipt Date: 20231010
  Transmission Date: 20240109
  Serious: Yes (Other)
  Sender: FDA-Public Use
  Company Number: US-002147023-NVSC2023US215757

PATIENT
  Sex: Female

DRUGS (5)
  1. COSENTYX [Suspect]
     Active Substance: SECUKINUMAB
     Indication: Hidradenitis
     Route: 065
  2. CEPHALEXIN [Concomitant]
     Active Substance: CEPHALEXIN
     Indication: Hidradenitis
     Route: 065
  3. CLINDAMYCIN [Concomitant]
     Active Substance: CLINDAMYCIN
     Indication: Hidradenitis
     Route: 065
  4. DOXYCYCLINE [Concomitant]
     Active Substance: DOXYCYCLINE
     Indication: Hidradenitis
     Route: 065
  5. PREDNISONE [Concomitant]
     Active Substance: PREDNISONE
     Indication: Hidradenitis
     Route: 065

REACTIONS (10)
  - Hidradenitis [Unknown]
  - Groin abscess [Unknown]
  - Rash erythematous [Unknown]
  - Fistula discharge [Unknown]
  - Dermatitis acneiform [Unknown]
  - Discomfort [Unknown]
  - Mobility decreased [Unknown]
  - Pilonidal disease [Unknown]
  - Pain [Unknown]
  - Condition aggravated [Unknown]
